FAERS Safety Report 23673429 (Version 1)
Quarter: 2024Q1

REPORT INFORMATION
  Report Type: Spontaneous
  Country: JP (occurrence: JP)
  Receive Date: 20240326
  Receipt Date: 20240326
  Transmission Date: 20240409
  Serious: Yes (Other)
  Sender: FDA-Public Use
  Company Number: JP-AMGEN-JPNSP2024057462

PATIENT
  Age: 1 Year
  Sex: Female

DRUGS (9)
  1. BLINATUMOMAB [Suspect]
     Active Substance: BLINATUMOMAB
     Indication: Acute lymphocytic leukaemia recurrent
     Dosage: UNK
     Route: 065
  2. CLOFARABINE [Concomitant]
     Active Substance: CLOFARABINE
     Indication: Acute lymphocytic leukaemia recurrent
     Dosage: UNK
     Route: 065
  3. FLUDARABINE [Concomitant]
     Active Substance: FLUDARABINE PHOSPHATE
     Indication: Acute lymphocytic leukaemia recurrent
     Dosage: 30 MILLIGRAM/M2, QD (DAY -11 TO -8)
     Route: 065
  4. ETOPOSIDE [Concomitant]
     Active Substance: ETOPOSIDE
     Indication: Acute lymphocytic leukaemia recurrent
     Dosage: 20 MILLIGRAM/KILOGRAM, QD (DAY -7)
     Route: 065
  5. BUSULFAN [Concomitant]
     Active Substance: BUSULFAN
     Indication: Acute lymphocytic leukaemia recurrent
     Dosage: 0.8 MILLIGRAM/KILOGRAM (DOSE X 4, DAY -6 TO -5)
     Route: 065
  6. MELPHALAN [Concomitant]
     Active Substance: MELPHALAN
     Indication: Acute lymphocytic leukaemia
     Dosage: 2 MILLIGRAM/KILOGRAM, QD (DAY -4 TO -2)
     Route: 065
  7. TACROLIMUS [Concomitant]
     Active Substance: TACROLIMUS
     Indication: Prophylaxis
     Dosage: UNK
     Route: 065
  8. MYCOPHENOLATE MOFETIL [Concomitant]
     Active Substance: MYCOPHENOLATE MOFETIL
     Indication: Prophylaxis
     Dosage: UNK
     Route: 065
  9. MYCOPHENOLATE MOFETIL [Concomitant]
     Active Substance: MYCOPHENOLATE MOFETIL
     Dosage: 600 MILLIGRAM/M2 (DIVIDED INTO TWO DAILY DOSES)
     Route: 065

REACTIONS (2)
  - Acute graft versus host disease in liver [Recovered/Resolved]
  - Liver disorder [Recovered/Resolved]
